FAERS Safety Report 16151520 (Version 3)
Quarter: 2020Q1

REPORT INFORMATION
  Report Type: Spontaneous
  Country: US (occurrence: US)
  Receive Date: 20190403
  Receipt Date: 20200226
  Transmission Date: 20200409
  Serious: Yes (Other)
  Sender: FDA-Public Use
  Company Number: US-PFIZER INC-2019131031

PATIENT
  Age: 11 Year
  Sex: Male
  Weight: 37 kg

DRUGS (3)
  1. PRISTIQ EXTENDED-RELEASE [Suspect]
     Active Substance: DESVENLAFAXINE SUCCINATE
     Dosage: UNK
  2. DESVENLAFAXINE SUCCINATE MONOHYDRATE [Suspect]
     Active Substance: DESVENLAFAXINE SUCCINATE
     Indication: BEHAVIOUR DISORDER
     Dosage: 50 MG, UNK
  3. POLYETHYLENE GLYCOL [Suspect]
     Active Substance: POLYETHYLENE GLYCOLS
     Dosage: UNK

REACTIONS (6)
  - Product use in unapproved indication [Unknown]
  - Eczema [Recovering/Resolving]
  - Product coating issue [Unknown]
  - Off label use [Unknown]
  - Drug hypersensitivity [Unknown]
  - Product use issue [Unknown]
